FAERS Safety Report 13301456 (Version 6)
Quarter: 2025Q3

REPORT INFORMATION
  Report Type: Spontaneous
  Country: EU (occurrence: EU)
  Receive Date: 20170307
  Receipt Date: 20250708
  Transmission Date: 20251020
  Serious: Yes (Hospitalization, Other)
  Sender: AUROBINDO
  Company Number: EU-AUROBINDO-AUR-APL-2017-30704

PATIENT
  Age: 54 Year
  Sex: Female

DRUGS (12)
  1. ARIPIPRAZOLE [Interacting]
     Active Substance: ARIPIPRAZOLE
     Indication: Depression
     Dosage: 5 MILLIGRAM, ONCE A DAY
     Route: 065
     Dates: start: 201504
  2. ARIPIPRAZOLE [Interacting]
     Active Substance: ARIPIPRAZOLE
     Indication: Obsessive-compulsive disorder
  3. FLUOXETINE [Interacting]
     Active Substance: FLUOXETINE HYDROCHLORIDE
     Indication: Anxiety
     Route: 048
     Dates: start: 201504
  4. MIRTAZAPINE [Suspect]
     Active Substance: MIRTAZAPINE
     Indication: Anxiety
     Route: 048
     Dates: start: 201404, end: 201506
  5. CLONAZEPAM [Concomitant]
     Active Substance: CLONAZEPAM
     Indication: Obsessive-compulsive disorder
     Route: 065
     Dates: start: 201504
  6. CLONAZEPAM [Concomitant]
     Active Substance: CLONAZEPAM
     Indication: Depression
  7. ENALAPRIL [Concomitant]
     Active Substance: ENALAPRIL
     Indication: Obsessive-compulsive disorder
     Route: 065
     Dates: start: 201504
  8. ENALAPRIL [Concomitant]
     Active Substance: ENALAPRIL
     Indication: Depression
  9. LEVOTHYROXINE SODIUM [Concomitant]
     Active Substance: LEVOTHYROXINE SODIUM
     Indication: Obsessive-compulsive disorder
     Route: 065
     Dates: start: 201504
  10. LEVOTHYROXINE SODIUM [Concomitant]
     Active Substance: LEVOTHYROXINE SODIUM
     Indication: Depression
  11. RISPERIDONE [Concomitant]
     Active Substance: RISPERIDONE
     Indication: Obsessive-compulsive disorder
     Route: 065
     Dates: start: 201504
  12. RISPERIDONE [Concomitant]
     Active Substance: RISPERIDONE
     Indication: Depression

REACTIONS (8)
  - Pneumonia aspiration [Recovered/Resolved]
  - Dysphagia [Recovered/Resolved]
  - Labelled drug-drug interaction medication error [Recovered/Resolved]
  - Pyrexia [Unknown]
  - Dyspnoea [Unknown]
  - Pneumonia [Unknown]
  - Aspiration [Recovered/Resolved]
  - Drug interaction [Recovered/Resolved]

NARRATIVE: CASE EVENT DATE: 20150601
